FAERS Safety Report 6955744-4 (Version None)
Quarter: 2010Q3

REPORT INFORMATION
  Report Type: 
  Country: None (occurrence: None)
  Receive Date: 20100830
  Receipt Date: 20100715
  Transmission Date: 20110219
  Serious: Yes (Other)
  Sender: FDA-Public Use
  Company Number: US-AMGEN-QUU424670

PATIENT
  Sex: Male
  Weight: 59.9 kg

DRUGS (14)
  1. NPLATE [Suspect]
     Indication: IDIOPATHIC THROMBOCYTOPENIC PURPURA
     Dates: start: 20100513
  2. ARANESP [Suspect]
     Indication: PRODUCT USED FOR UNKNOWN INDICATION
  3. VICODIN [Concomitant]
  4. DARVOCET-N 100 [Concomitant]
  5. CARAFATE [Concomitant]
  6. MULTI-VITAMINS [Concomitant]
  7. FLOMAX [Concomitant]
  8. FUROSEMIDE [Concomitant]
  9. POTASSIUM [Concomitant]
  10. SYNTHROID [Concomitant]
  11. LIPITOR [Concomitant]
  12. MAGNESIUM OXIDE [Concomitant]
  13. PRILOSEC [Concomitant]
  14. VITAMIN B6 [Concomitant]

REACTIONS (1)
  - DRUG INEFFECTIVE [None]
